FAERS Safety Report 17958709 (Version 1)
Quarter: 2020Q2

REPORT INFORMATION
  Report Type: Spontaneous
  Country: CN (occurrence: CN)
  Receive Date: 20200630
  Receipt Date: 20200630
  Transmission Date: 20200714
  Serious: Yes (Other)
  Sender: FDA-Public Use
  Company Number: CN-ROCHE-2632613

PATIENT
  Age: 45 Year
  Sex: Male

DRUGS (17)
  1. AVASTIN [Suspect]
     Active Substance: BEVACIZUMAB
     Indication: LUNG ADENOCARCINOMA
     Route: 065
     Dates: start: 20170421
  2. OSIMERTINIB. [Concomitant]
     Active Substance: OSIMERTINIB
     Route: 065
     Dates: start: 20190115
  3. GEMCITABINE. [Concomitant]
     Active Substance: GEMCITABINE
     Indication: LUNG ADENOCARCINOMA
     Route: 065
     Dates: start: 20190918
  4. BRIGATINIB [Concomitant]
     Active Substance: BRIGATINIB
     Indication: LUNG ADENOCARCINOMA
     Route: 065
     Dates: start: 20190630, end: 201907
  5. CETUXIMAB. [Concomitant]
     Active Substance: CETUXIMAB
     Indication: LUNG ADENOCARCINOMA
     Route: 065
     Dates: start: 20190630
  6. LOBAPLATIN [Concomitant]
     Active Substance: LOBAPLATIN
     Indication: LUNG ADENOCARCINOMA
     Dosage: FIRST CYCLE
     Route: 042
     Dates: start: 20190726
  7. LOBAPLATIN [Concomitant]
     Active Substance: LOBAPLATIN
     Route: 065
     Dates: start: 20190918
  8. RECOMBINANT HUMAN ENDOSTATIN [Concomitant]
     Active Substance: ENDOSTATIN
     Indication: LUNG ADENOCARCINOMA
     Route: 065
     Dates: start: 2019
  9. VINORELBINE [Concomitant]
     Active Substance: VINORELBINE TARTRATE
     Indication: LUNG ADENOCARCINOMA
     Route: 065
     Dates: start: 20190726
  10. GEFITINIB. [Concomitant]
     Active Substance: GEFITINIB
     Indication: LUNG ADENOCARCINOMA
     Route: 065
     Dates: start: 20160324
  11. GEFITINIB. [Concomitant]
     Active Substance: GEFITINIB
     Route: 065
     Dates: start: 2017
  12. OSIMERTINIB. [Concomitant]
     Active Substance: OSIMERTINIB
     Indication: LUNG ADENOCARCINOMA
     Route: 065
     Dates: start: 20171122
  13. CATEQUENTINIB. [Concomitant]
     Active Substance: CATEQUENTINIB
     Indication: LUNG ADENOCARCINOMA
     Route: 065
     Dates: start: 20190115
  14. CISPLATIN. [Concomitant]
     Active Substance: CISPLATIN
     Indication: LUNG ADENOCARCINOMA
     Route: 065
     Dates: start: 20170421
  15. VINORELBINE [Concomitant]
     Active Substance: VINORELBINE TARTRATE
     Route: 065
     Dates: start: 20190822
  16. LOBAPLATIN [Concomitant]
     Active Substance: LOBAPLATIN
     Route: 042
     Dates: start: 20190822
  17. PEMETREXED. [Concomitant]
     Active Substance: PEMETREXED
     Indication: LUNG ADENOCARCINOMA
     Route: 065
     Dates: start: 20170421

REACTIONS (2)
  - Bone marrow failure [Recovering/Resolving]
  - Interstitial lung disease [Recovering/Resolving]

NARRATIVE: CASE EVENT DATE: 20190705
